FAERS Safety Report 25596204 (Version 2)
Quarter: 2025Q3

REPORT INFORMATION
  Report Type: Spontaneous
  Country: US (occurrence: US)
  Receive Date: 20250723
  Receipt Date: 20250912
  Transmission Date: 20251021
  Serious: No
  Sender: SANOFI AVENTIS
  Company Number: US-SA-2025SA210808

PATIENT
  Age: 33 Year
  Sex: Male
  Weight: 79.55 kg

DRUGS (2)
  1. ALTUVIIIO [Suspect]
     Active Substance: EFANESOCTOCOG ALFA
     Indication: Factor VIII deficiency
     Route: 042
     Dates: start: 202408
  2. ALTUVIIIO [Suspect]
     Active Substance: EFANESOCTOCOG ALFA
     Route: 042
     Dates: start: 202408

REACTIONS (3)
  - Haemorrhage [Unknown]
  - Weight decreased [Unknown]
  - Spontaneous haemorrhage [Unknown]

NARRATIVE: CASE EVENT DATE: 20250101
